FAERS Safety Report 15283823 (Version 1)
Quarter: 2018Q3

REPORT INFORMATION
  Report Type: Spontaneous
  Country: US (occurrence: US)
  Receive Date: 20180801
  Receipt Date: 20180801
  Transmission Date: 20181010
  Serious: No
  Sender: FDA-Public Use
  Company Number: None

PATIENT
  Age: 65 Year
  Sex: Female
  Weight: 77.85 kg

DRUGS (12)
  1. HYDROCODONE?ACETAMINOPHEN [Concomitant]
     Active Substance: ACETAMINOPHEN\HYDROCODONE
  2. IBRANCE [Suspect]
     Active Substance: PALBOCICLIB
     Indication: NEOPLASM MALIGNANT
     Route: 048
     Dates: start: 20170605, end: 20180801
  3. ALPRAZOLAM. [Concomitant]
     Active Substance: ALPRAZOLAM
  4. ASPIRIN EC LOW DOSE [Concomitant]
  5. APAP EXTRA STRENGTH [Concomitant]
     Active Substance: ACETAMINOPHEN
  6. LETROZOLE. [Concomitant]
     Active Substance: LETROZOLE
  7. SIMVASTATIN. [Concomitant]
     Active Substance: SIMVASTATIN
  8. LISINOPRIL. [Concomitant]
     Active Substance: LISINOPRIL
  9. METHOTREXATE. [Concomitant]
     Active Substance: METHOTREXATE
  10. PLAVIX [Concomitant]
     Active Substance: CLOPIDOGREL BISULFATE
  11. XGEVA [Concomitant]
     Active Substance: DENOSUMAB
  12. MOBIC [Concomitant]
     Active Substance: MELOXICAM

REACTIONS (1)
  - Disease progression [None]
